FAERS Safety Report 11443016 (Version 1)
Quarter: 2015Q3

REPORT INFORMATION
  Report Type: Report from Study
  Country: US (occurrence: US)
  Receive Date: 20150901
  Receipt Date: 20150901
  Transmission Date: 20151125
  Serious: No
  Sender: FDA-Public Use
  Company Number: US-GLAXOSMITHKLINE-US2015124517

PATIENT
  Age: 36 Year
  Sex: Female

DRUGS (9)
  1. ADCIRCA [Concomitant]
     Active Substance: TADALAFIL
  2. LORATADINE. [Concomitant]
     Active Substance: LORATADINE
  3. VELETRI [Suspect]
     Active Substance: EPOPROSTENOL
     Dosage: UNK
     Route: 065
     Dates: start: 20150818, end: 20150818
  4. POTASSIUM [Concomitant]
     Active Substance: POTASSIUM
  5. AMBRISENTAN TABLET [Suspect]
     Active Substance: AMBRISENTAN
     Indication: PULMONARY ARTERIAL HYPERTENSION
     Dosage: 5 MG, QD
     Route: 065
     Dates: start: 20150708
  6. VELETRI [Suspect]
     Active Substance: EPOPROSTENOL
     Dosage: UNK
     Route: 065
     Dates: end: 20150817
  7. BACTRIM [Concomitant]
     Active Substance: SULFAMETHOXAZOLE\TRIMETHOPRIM
  8. VELETRI [Suspect]
     Active Substance: EPOPROSTENOL
     Indication: PRODUCT USED FOR UNKNOWN INDICATION
     Dosage: UNK
     Route: 065
     Dates: start: 20150819
  9. PEPCID [Concomitant]
     Active Substance: FAMOTIDINE

REACTIONS (1)
  - Headache [Unknown]

NARRATIVE: CASE EVENT DATE: 20150818
